FAERS Safety Report 19821054 (Version 1)
Quarter: 2021Q3

REPORT INFORMATION
  Report Type: Report from Study
  Country: KR (occurrence: KR)
  Receive Date: 20210913
  Receipt Date: 20210913
  Transmission Date: 20211014
  Serious: Yes (Hospitalization)
  Sender: FDA-Public Use
  Company Number: KR-EISAI MEDICAL RESEARCH-EC-2021-099304

PATIENT
  Age: 70 Year
  Sex: Female
  Weight: 66.6 kg

DRUGS (16)
  1. NOVOMIX 30 FLEX PEN INJ 100IU/ML [Concomitant]
     Indication: DIABETES MELLITUS
     Route: 058
     Dates: start: 20170227
  2. FURIX [Concomitant]
     Indication: ASCITES
     Route: 048
     Dates: start: 20200407, end: 20200720
  3. FURIX [Concomitant]
     Route: 048
     Dates: start: 20200421, end: 20200421
  4. LENVIMA [Suspect]
     Active Substance: LENVATINIB
     Indication: HEPATOCELLULAR CARCINOMA
     Route: 048
     Dates: start: 20200228, end: 20200309
  5. ASPIRIN. [Concomitant]
     Active Substance: ASPIRIN
     Indication: HYPERTENSION
     Route: 048
     Dates: start: 20141213
  6. OLDECA [Concomitant]
     Indication: HYPERTENSION
     Route: 048
     Dates: start: 20160203
  7. CONCOR [Concomitant]
     Active Substance: BISOPROLOL FUMARATE
     Indication: HYPERTENSION
     Route: 048
     Dates: start: 20150105
  8. ATACAND [Concomitant]
     Active Substance: CANDESARTAN CILEXETIL
     Indication: HYPERTENSION
     Dates: start: 20160106
  9. HEPAGEL [Concomitant]
     Active Substance: HEPARIN SODIUM
     Indication: HEPATIC CIRRHOSIS
     Route: 048
     Dates: start: 20190429
  10. PENNEL [Concomitant]
     Indication: HEPATIC CIRRHOSIS
     Route: 048
     Dates: start: 20151208
  11. TENELIA [Concomitant]
     Active Substance: TENELIGLIPTIN
     Indication: DIABETES MELLITUS
     Route: 048
     Dates: start: 20160823
  12. MEGACE F [Concomitant]
     Indication: PROPHYLAXIS
     Route: 048
     Dates: start: 20200316, end: 20200518
  13. ZOFRAN [Concomitant]
     Active Substance: ONDANSETRON HYDROCHLORIDE
     Indication: DECREASED APPETITE
     Route: 048
     Dates: start: 20200323, end: 20200518
  14. PLAVIX [Concomitant]
     Active Substance: CLOPIDOGREL BISULFATE
     Indication: HYPERTENSION
     Route: 048
     Dates: start: 20141212
  15. FURIX [Concomitant]
     Indication: CHRONIC KIDNEY DISEASE
     Route: 048
     Dates: start: 20151127
  16. LENVIMA [Suspect]
     Active Substance: LENVATINIB
     Route: 048
     Dates: start: 20200310, end: 20200420

REACTIONS (1)
  - Ascites [Recovered/Resolved]

NARRATIVE: CASE EVENT DATE: 20200422
